FAERS Safety Report 24702180 (Version 2)
Quarter: 2025Q2

REPORT INFORMATION
  Report Type: Spontaneous
  Country: RO (occurrence: RO)
  Receive Date: 20241205
  Receipt Date: 20250616
  Transmission Date: 20250717
  Serious: Yes (Other)
  Sender: MYLAN
  Company Number: RO-002147023-NVSC2024RO219958

PATIENT
  Age: 37 Year
  Sex: Female

DRUGS (8)
  1. IMATINIB [Suspect]
     Active Substance: IMATINIB
     Indication: Chronic myeloid leukaemia
     Dosage: 400 MG
     Dates: start: 201806
  2. TASIGNA [Suspect]
     Active Substance: NILOTINIB
     Indication: Chronic myeloid leukaemia
     Dosage: 600 MG
     Dates: start: 201901
  3. TASIGNA [Suspect]
     Active Substance: NILOTINIB
  4. TASIGNA [Suspect]
     Active Substance: NILOTINIB
  5. SCEMBLIX [Suspect]
     Active Substance: ASCIMINIB HYDROCHLORIDE
     Indication: Chronic myeloid leukaemia
     Dosage: 40 MILLIGRAM, BID (80 MILLIGRAM, QD)
     Dates: start: 202312
  6. INTERFERON BETA-1B [Suspect]
     Active Substance: INTERFERON BETA-1B
     Indication: Chronic myeloid leukaemia
  7. BOSUTINIB [Concomitant]
     Active Substance: BOSUTINIB
     Indication: Chronic myeloid leukaemia
     Dosage: 500 MILLIGRAM, QD
     Dates: start: 202111
  8. BOSUTINIB [Concomitant]
     Active Substance: BOSUTINIB

REACTIONS (8)
  - Thrombocytopenia [Unknown]
  - Pancytopenia [Unknown]
  - Renal colic [Unknown]
  - Leukocytosis [Unknown]
  - Splenomegaly [Unknown]
  - Rash erythematous [Unknown]
  - Dyspepsia [Unknown]
  - Treatment failure [Unknown]

NARRATIVE: CASE EVENT DATE: 20181201
